FAERS Safety Report 19945610 (Version 2)
Quarter: 2022Q2

REPORT INFORMATION
  Report Type: Spontaneous
  Country: US (occurrence: US)
  Receive Date: 20211012
  Receipt Date: 20220622
  Transmission Date: 20220721
  Serious: Yes (Death, Other)
  Sender: FDA-Public Use
  Company Number: US-PFIZER INC-202101065055

PATIENT
  Age: 76 Year
  Sex: Female
  Weight: 52.62 kg

DRUGS (1)
  1. XELJANZ XR [Suspect]
     Active Substance: TOFACITINIB CITRATE
     Dosage: 11 MG, 1X/DAY
     Route: 048

REACTIONS (5)
  - Acute respiratory failure [Fatal]
  - Pneumonia bacterial [Fatal]
  - Immunosuppression [Fatal]
  - Interstitial lung disease [Fatal]
  - Diarrhoea [Not Recovered/Not Resolved]
